FAERS Safety Report 6014504-1 (Version None)
Quarter: 2008Q4

REPORT INFORMATION
  Report Type: 
  Country: None (occurrence: None)
  Receive Date: 20081219
  Receipt Date: 20080723
  Transmission Date: 20090506
  Serious: No
  Sender: FDA-Public Use
  Company Number: A0739118A

PATIENT
  Age: 64 Year
  Sex: Male

DRUGS (4)
  1. AVODART [Suspect]
     Dosage: .5MG PER DAY
     Route: 048
     Dates: start: 20080101
  2. ZINC [Concomitant]
  3. SALMON OIL [Concomitant]
  4. GARLIC [Concomitant]

REACTIONS (1)
  - SEMEN VOLUME DECREASED [None]
